FAERS Safety Report 6555291-8 (Version None)
Quarter: 2010Q1

REPORT INFORMATION
  Report Type: 
  Country: None (occurrence: None)
  Receive Date: 20100128
  Receipt Date: 20090327
  Transmission Date: 20100710
  Serious: No
  Sender: FDA-Public Use
  Company Number: A0775903B

PATIENT

DRUGS (1)
  1. WELLBUTRIN [Suspect]
     Indication: DEPRESSION
     Dosage: 150MG THREE TIMES PER DAY
     Route: 048
     Dates: start: 20030101, end: 20070101

REACTIONS (4)
  - DRUG EXPOSURE DURING PREGNANCY [None]
  - RESPIRATORY DISORDER [None]
  - RESPIRATORY SYNCYTIAL VIRUS INFECTION [None]
  - WHEEZING [None]
